FAERS Safety Report 17622276 (Version 2)
Quarter: 2020Q2

REPORT INFORMATION
  Report Type: Spontaneous
  Country: AE (occurrence: AE)
  Receive Date: 20200403
  Receipt Date: 20200407
  Transmission Date: 20200713
  Serious: Yes (Hospitalization, Other)
  Sender: FDA-Public Use
  Company Number: AE-SA-2020SA075436

PATIENT
  Age: 57 Year
  Sex: Male

DRUGS (4)
  1. OXALIPLATIN. [Suspect]
     Active Substance: OXALIPLATIN
     Indication: CHOLANGIOCARCINOMA
     Dosage: UNK UNK, QCY
  2. FOLINIC ACID [Concomitant]
     Active Substance: LEUCOVORIN
     Indication: CHOLANGIOCARCINOMA
     Dosage: UNK UNK, QCY
  3. FLOUROURACIL [Concomitant]
     Active Substance: FLUOROURACIL
     Indication: CHOLANGIOCARCINOMA
     Dosage: UNK UNK, QCY
  4. IRINOTECAN [Concomitant]
     Active Substance: IRINOTECAN
     Indication: CHOLANGIOCARCINOMA
     Dosage: UNK UNK, QCY

REACTIONS (15)
  - Myalgia [Recovering/Resolving]
  - Renal impairment [Recovered/Resolved]
  - Blood creatinine increased [Recovered/Resolved]
  - Hyperchloraemia [Recovered/Resolved]
  - Blood phosphorus decreased [Recovered/Resolved]
  - Hypokalaemia [Recovered/Resolved]
  - Glycosuria [Recovered/Resolved]
  - Renal tubular necrosis [Recovered/Resolved]
  - Urine potassium decreased [Recovered/Resolved]
  - Renal tubular acidosis [Recovering/Resolving]
  - Nephropathy toxic [Recovering/Resolving]
  - Ileus [Unknown]
  - Nephropathy [Recovering/Resolving]
  - Fanconi syndrome [Recovering/Resolving]
  - Metabolic acidosis [Recovered/Resolved]
